FAERS Safety Report 5381252-0 (Version None)
Quarter: 2007Q3

REPORT INFORMATION
  Report Type: 
  Country: None (occurrence: None)
  Receive Date: 20070706
  Receipt Date: 20070626
  Transmission Date: 20080115
  Serious: Yes (Death, Hospitalization)
  Sender: FDA-Public Use
  Company Number: GR-ABBOTT-07P-066-0372585-00

PATIENT
  Age: 61 Year
  Sex: Male

DRUGS (5)
  1. TARKA [Suspect]
     Indication: HYPERTENSION
     Route: 048
     Dates: start: 20060227, end: 20070212
  2. MODURETIC 5-50 [Concomitant]
     Indication: HYPERTENSION
     Route: 048
     Dates: start: 20060330, end: 20070212
  3. ASPIRIN [Concomitant]
     Indication: CORONARY ARTERY DISEASE
     Route: 048
     Dates: end: 20070212
  4. CLOPIDOGREL BISULFATE [Concomitant]
     Indication: CORONARY ARTERY DISEASE
     Route: 048
     Dates: start: 20050101, end: 20070212
  5. SIMVASTATIN [Concomitant]
     Indication: DYSLIPIDAEMIA
     Route: 048
     Dates: end: 20070212

REACTIONS (1)
  - ACUTE MYOCARDIAL INFARCTION [None]
